FAERS Safety Report 5367502-5 (Version None)
Quarter: 2007Q2

REPORT INFORMATION
  Report Type: 
  Country: None (occurrence: None)
  Receive Date: 20070622
  Receipt Date: 20061020
  Transmission Date: 20071010
  Serious: No
  Sender: FDA-Public Use
  Company Number: US-ASTRAZENECA-2006UW20286

PATIENT
  Age: 74 Year
  Sex: Female
  Weight: 63.5 kg

DRUGS (3)
  1. PULMICORT RESPULES [Suspect]
     Indication: DYSPNOEA
     Route: 055
  2. DUONEB [Concomitant]
  3. FLUCONAZOLE [Concomitant]

REACTIONS (3)
  - CHEILITIS [None]
  - GLOSSODYNIA [None]
  - STOMATITIS [None]
